FAERS Safety Report 16093893 (Version 1)
Quarter: 2019Q1

REPORT INFORMATION
  Report Type: Spontaneous
  Country: IT (occurrence: IT)
  Receive Date: 20190320
  Receipt Date: 20190320
  Transmission Date: 20190418
  Serious: Yes (Other)
  Sender: FDA-Public Use
  Company Number: IT-NALPROPION PHARMACEUTICALS INC.-2019-006783

PATIENT

DRUGS (2)
  1. LOORTAN [Concomitant]
     Active Substance: LOSARTAN POTASSIUM
     Indication: HYPERTENSION
     Dosage: 100MG, FILM-COATED TABLET, DURATION 18 YEARS
     Route: 048
  2. MYSIMBA (NALTREXONE HCL/BUPROPION HCL) PROLONGED-RELEASE TABLETS [Suspect]
     Active Substance: BUPROPION HYDROCHLORIDE\NALTREXONE HYDROCHLORIDE
     Indication: MEDICAL DIET
     Dosage: 1 DOSAGE FORM
     Route: 048
     Dates: start: 20190305, end: 20190305

REACTIONS (3)
  - Blood pressure increased [Recovering/Resolving]
  - Dysphagia [Recovering/Resolving]
  - Rash [Recovering/Resolving]

NARRATIVE: CASE EVENT DATE: 20190305
